FAERS Safety Report 6488665-4 (Version None)
Quarter: 2009Q4

REPORT INFORMATION
  Report Type: 
  Country: None (occurrence: None)
  Receive Date: 20091210
  Receipt Date: 20091130
  Transmission Date: 20100525
  Serious: Yes (Other)
  Sender: FDA-Public Use
  Company Number: AU-PFIZER INC-2009304553

PATIENT
  Age: 52 Year
  Sex: Male

DRUGS (3)
  1. CHAMPIX [Suspect]
     Dosage: UNK
  2. ZACTIN [Concomitant]
  3. VALPROATE SODIUM [Concomitant]

REACTIONS (11)
  - ABNORMAL BEHAVIOUR [None]
  - ALCOHOL USE [None]
  - ANGER [None]
  - CONFUSIONAL STATE [None]
  - DEPRESSION [None]
  - FATIGUE [None]
  - MEMORY IMPAIRMENT [None]
  - PARANOIA [None]
  - PERSONALITY CHANGE [None]
  - RETCHING [None]
  - SUICIDAL IDEATION [None]
